FAERS Safety Report 9947314 (Version 1)
Quarter: 2014Q1

REPORT INFORMATION
  Report Type: Report from Study
  Country: US (occurrence: US)
  Receive Date: 20140303
  Receipt Date: 20140303
  Transmission Date: 20141002
  Serious: No
  Sender: FDA-Public Use
  Company Number: US-ABBVIE-13P-163-1063644-00

PATIENT
  Age: 61 Year
  Sex: Male

DRUGS (9)
  1. HUMIRA [Suspect]
     Indication: ANKYLOSING SPONDYLITIS
     Dates: start: 20130128
  2. SHINGLES VACCINE [Suspect]
     Indication: PRODUCT USED FOR UNKNOWN INDICATION
     Route: 050
     Dates: start: 201302
  3. UNKNOWN PNEUMONIA MEDICATION [Suspect]
     Indication: PNEUMONIA
     Route: 050
  4. UNKNOWN SHINGLES MEDICATION [Suspect]
     Indication: HERPES ZOSTER
     Route: 050
  5. PNEUMONIA VACCINE (NON-GSK) [Suspect]
     Indication: PRODUCT USED FOR UNKNOWN INDICATION
     Route: 050
  6. LISINOPRIL [Concomitant]
     Indication: BLOOD PRESSURE
  7. VIAGRA [Concomitant]
     Indication: ERECTILE DYSFUNCTION
  8. OXYCODONE [Concomitant]
     Indication: PAIN
     Dosage: 30 MG EVERY 4 HOURS AS NEEDED
  9. PREVACID [Concomitant]
     Indication: GASTROOESOPHAGEAL REFLUX DISEASE

REACTIONS (7)
  - Chills [Not Recovered/Not Resolved]
  - Influenza [Not Recovered/Not Resolved]
  - Pyrexia [Not Recovered/Not Resolved]
  - Muscle spasms [Not Recovered/Not Resolved]
  - Pain [Not Recovered/Not Resolved]
  - Decreased appetite [Not Recovered/Not Resolved]
  - Rhinorrhoea [Not Recovered/Not Resolved]
